FAERS Safety Report 7517122-9 (Version None)
Quarter: 2011Q2

REPORT INFORMATION
  Report Type: 
  Country: None (occurrence: None)
  Receive Date: 20110526
  Receipt Date: 20110526
  Transmission Date: 20111010
  Serious: Yes (Other)
  Sender: FDA-Public Use
  Company Number: None

PATIENT
  Sex: Male
  Weight: 83.3258 kg

DRUGS (1)
  1. NIFEDIPINE [Suspect]

REACTIONS (1)
  - PRODUCT SIZE ISSUE [None]
